FAERS Safety Report 17851508 (Version 1)
Quarter: 2020Q2

REPORT INFORMATION
  Report Type: Report from Study
  Country: CN (occurrence: CN)
  Receive Date: 20200602
  Receipt Date: 20200602
  Transmission Date: 20200714
  Serious: Yes (Death, Other)
  Sender: FDA-Public Use
  Company Number: CN-ROCHE-2219551

PATIENT
  Age: 73 Year
  Sex: Male
  Weight: 78 kg

DRUGS (3)
  1. AVASTIN [Suspect]
     Active Substance: BEVACIZUMAB
     Indication: COLORECTAL CANCER
     Route: 041
     Dates: start: 20170803, end: 20190116
  2. AVASTIN [Suspect]
     Active Substance: BEVACIZUMAB
     Route: 041
  3. AVASTIN [Suspect]
     Active Substance: BEVACIZUMAB
     Route: 041
     Dates: start: 20190227

REACTIONS (8)
  - Hypertension [Recovered/Resolved]
  - Blood pressure abnormal [Recovering/Resolving]
  - Cerebral infarction [Unknown]
  - Respiratory failure [Fatal]
  - Discomfort [Unknown]
  - Rectal haemorrhage [Unknown]
  - Labile blood pressure [Unknown]
  - Hypertension [Unknown]

NARRATIVE: CASE EVENT DATE: 20190116
